FAERS Safety Report 5241121-3 (Version None)
Quarter: 2007Q1

REPORT INFORMATION
  Report Type: 
  Country: None (occurrence: None)
  Receive Date: 20070214
  Receipt Date: 20070214
  Transmission Date: 20070707
  Serious: No
  Sender: FDA-Public Use
  Company Number: None

PATIENT
  Age: 61 Year
  Sex: Female

DRUGS (9)
  1. ZEBETA [Suspect]
     Indication: HYPERTENSION
     Dosage: 1 TABLET BY MOUTH DAILY
     Route: 048
     Dates: start: 20070106
  2. NORVASC [Concomitant]
  3. RHINOCORT AQUA [Concomitant]
  4. DYAZIDE [Concomitant]
  5. RELAFEN [Concomitant]
  6. PRILOSEC [Concomitant]
  7. LOTRE [Concomitant]
  8. CRESTOR [Concomitant]
  9. ALLEGRA [Concomitant]

REACTIONS (1)
  - PHARMACEUTICAL PRODUCT COMPLAINT [None]
